FAERS Safety Report 5766414-2 (Version None)
Quarter: 2008Q2

REPORT INFORMATION
  Report Type: 
  Country: None (occurrence: None)
  Receive Date: 20080611
  Receipt Date: 20080515
  Transmission Date: 20081010
  Serious: No
  Sender: FDA-Public Use
  Company Number: US-BOEHRINGER INGELHEIM GMBH, GERMANY-2008-BP-07730BP

PATIENT
  Age: 71 Year
  Sex: Female

DRUGS (1)
  1. AGGRENOX [Suspect]
     Dates: start: 20020101

REACTIONS (1)
  - MALABSORPTION [None]
